FAERS Safety Report 10559502 (Version 2)
Quarter: 2015Q1

REPORT INFORMATION
  Report Type: Report from Study
  Country: US (occurrence: US)
  Receive Date: 20141103
  Receipt Date: 20150106
  Transmission Date: 20150720
  Serious: No
  Sender: FDA-Public Use
  Company Number: PHEH2014US021840

PATIENT
  Sex: Male
  Weight: 86 kg

DRUGS (1)
  1. TEGRETOL [Suspect]
     Active Substance: CARBAMAZEPINE
     Indication: SEIZURE
     Dosage: 1 DF AT 9 AM AND 2 DF AT 9 PM, DAILY
     Route: 048

REACTIONS (2)
  - Photophobia [Unknown]
  - Dizziness [Unknown]
